FAERS Safety Report 6557686-5 (Version None)
Quarter: 2010Q1

REPORT INFORMATION
  Report Type: 
  Country: None (occurrence: None)
  Receive Date: 20100126
  Receipt Date: 20090930
  Transmission Date: 20100710
  Serious: Yes (Other)
  Sender: FDA-Public Use
  Company Number: LMI-2009-00269

PATIENT
  Sex: Female

DRUGS (3)
  1. DEFINITY [Suspect]
     Indication: STRESS ECHOCARDIOGRAM
     Dosage: 2 DOSES
     Dates: start: 20080101, end: 20080101
  2. ATROPINE [Suspect]
     Indication: HEART RATE
     Dates: start: 20080101, end: 20080101
  3. DOBUTAMINE (DOBUTAMINE) [Concomitant]

REACTIONS (3)
  - DYSPNOEA [None]
  - PHARYNGEAL OEDEMA [None]
  - RASH ERYTHEMATOUS [None]
